FAERS Safety Report 6423504-9 (Version None)
Quarter: 2009Q4

REPORT INFORMATION
  Report Type: 
  Country: None (occurrence: None)
  Receive Date: 20091028
  Receipt Date: 20091021
  Transmission Date: 20100525
  Serious: Yes (Hospitalization)
  Sender: FDA-Public Use
  Company Number: UKP09000176

PATIENT
  Age: 66 Year
  Sex: Female

DRUGS (1)
  1. ACTONEL [Suspect]
     Indication: PROPHYLAXIS
     Dosage: 35 MG, 1 WEEK, ORAL
     Route: 048
     Dates: start: 20090701, end: 20090901

REACTIONS (2)
  - PRESYNCOPE [None]
  - UVEITIS [None]
